FAERS Safety Report 17980787 (Version 1)
Quarter: 2020Q3

REPORT INFORMATION
  Report Type: Spontaneous
  Country: IN (occurrence: IN)
  Receive Date: 20200704
  Receipt Date: 20200704
  Transmission Date: 20201103
  Serious: Yes (Hospitalization, Other)
  Sender: FDA-Public Use
  Company Number: IN-MICRO LABS LIMITED-ML2020-01922

PATIENT
  Age: 8 Month
  Sex: Male
  Weight: 7.7 kg

DRUGS (6)
  1. AMIODARONE [Suspect]
     Active Substance: AMIODARONE
     Indication: LEFT VENTRICULAR DYSFUNCTION
  2. XYLOCARD [Suspect]
     Active Substance: LIDOCAINE HYDROCHLORIDE
     Indication: TACHYCARDIA INDUCED CARDIOMYOPATHY
  3. DILTIAZEM. [Suspect]
     Active Substance: DILTIAZEM
     Indication: VENTRICULAR TACHYCARDIA
  4. DILTIAZEM. [Suspect]
     Active Substance: DILTIAZEM
     Indication: LEFT VENTRICULAR DYSFUNCTION
  5. AMIODARONE [Suspect]
     Active Substance: AMIODARONE
     Indication: VENTRICULAR TACHYCARDIA
     Dosage: UP TO 15 MCG/KG/MIN
  6. VERAPAMIL HYDROCHLORIDE. [Suspect]
     Active Substance: VERAPAMIL HYDROCHLORIDE
     Indication: TACHYCARDIA INDUCED CARDIOMYOPATHY
     Dosage: 0.1 TO 0.2 MG/KG FOLLOWED BY 5 MCG/KG/MIN
     Route: 042

REACTIONS (1)
  - Drug ineffective [Unknown]
